FAERS Safety Report 10455455 (Version 1)
Quarter: 2014Q3

REPORT INFORMATION
  Report Type: Spontaneous
  Country: US (occurrence: None)
  Receive Date: 20140915
  Receipt Date: 20140915
  Transmission Date: 20150326
  Serious: No
  Sender: FDA-Public Use
  Company Number: None

PATIENT
  Age: 23 Year
  Sex: Male
  Weight: 68.04 kg

DRUGS (1)
  1. AZITHROMYCIN [Suspect]
     Active Substance: AZITHROMYCIN ANHYDROUS
     Dosage: 2 PILLS TAKEN BY MOUTH
     Route: 048

REACTIONS (2)
  - Abdominal pain upper [None]
  - Abnormal dreams [None]

NARRATIVE: CASE EVENT DATE: 20140910
